FAERS Safety Report 12684668 (Version 1)
Quarter: 2016Q3

REPORT INFORMATION
  Report Type: Spontaneous
  Country: DK (occurrence: DK)
  Receive Date: 20160825
  Receipt Date: 20160825
  Transmission Date: 20161109
  Serious: Yes (Disabling)
  Sender: FDA-Public Use
  Company Number: PHHY2016DK114561

PATIENT
  Age: 63 Year
  Sex: Male
  Weight: 75 kg

DRUGS (6)
  1. SERTRALINE [Suspect]
     Active Substance: SERTRALINE HYDROCHLORIDE
     Indication: DEPRESSED MOOD
     Dosage: 50 MG, QD
     Route: 048
     Dates: start: 20160310, end: 20160413
  2. SIMVASTATIN. [Concomitant]
     Active Substance: SIMVASTATIN
     Indication: HYPERCHOLESTEROLAEMIA
     Route: 065
     Dates: start: 20140703
  3. PARACETAMOL SANDOZ [Concomitant]
     Active Substance: ACETAMINOPHEN
     Indication: ADVERSE DRUG REACTION
     Route: 065
     Dates: start: 20151224
  4. ESCITALOPRAM STADA [Suspect]
     Active Substance: ESCITALOPRAM OXALATE
     Indication: DEPRESSED MOOD
     Dosage: 10 MG, QD
     Route: 048
  5. DOLTARD [Concomitant]
     Indication: ADVERSE DRUG REACTION
     Route: 065
     Dates: start: 20151224
  6. HJERTEMAGNYL//ACETYLSALICYLIC ACID [Concomitant]
     Indication: ADVERSE DRUG REACTION
     Route: 065
     Dates: start: 20131129

REACTIONS (1)
  - Dysphemia [Not Recovered/Not Resolved]

NARRATIVE: CASE EVENT DATE: 20160320
